FAERS Safety Report 8517414-0 (Version None)
Quarter: 2012Q3

REPORT INFORMATION
  Report Type: 
  Country: None (occurrence: None)
  Receive Date: 20120718
  Receipt Date: 20120713
  Transmission Date: 20120928
  Serious: No
  Sender: FDA-Public Use
  Company Number: US-PFIZER INC-2012132668

PATIENT
  Sex: Female
  Weight: 68 kg

DRUGS (6)
  1. TRAZODONE [Concomitant]
     Indication: DEPRESSION
     Dosage: 50 MG, DAILY
  2. CLONIDINE [Concomitant]
     Indication: HYPERTENSION
     Dosage: UNK, 2X/DAY
  3. LYRICA [Suspect]
     Indication: FIBROMYALGIA
     Dosage: 225 MG, 2X/DAY
     Dates: end: 20120529
  4. NORCO [Concomitant]
     Indication: TOOTHACHE
     Dosage: UNK
     Dates: start: 20120101
  5. LISINOPRIL [Concomitant]
     Indication: HYPERTENSION
     Dosage: UNK, DAILY
  6. SAVELLA [Concomitant]
     Indication: FIBROMYALGIA
     Dosage: UNK, 2X/DAY
     Dates: start: 20110101

REACTIONS (10)
  - FEELING ABNORMAL [None]
  - DECREASED APPETITE [None]
  - PAIN [None]
  - FEELING COLD [None]
  - HYPERHIDROSIS [None]
  - SNEEZING [None]
  - DIARRHOEA [None]
  - DRUG WITHDRAWAL SYNDROME [None]
  - HOT FLUSH [None]
  - RHINORRHOEA [None]
